FAERS Safety Report 16763292 (Version 1)
Quarter: 2019Q3

REPORT INFORMATION
  Report Type: Spontaneous
  Country: FR (occurrence: FR)
  Receive Date: 20190902
  Receipt Date: 20190902
  Transmission Date: 20191005
  Serious: Yes (Other)
  Sender: FDA-Public Use
  Company Number: FR-SPARK THERAPEUTICS, INC.-FR-SPK-19-00035

PATIENT
  Age: 22 Year
  Sex: Male

DRUGS (4)
  1. LUXTURNA [Suspect]
     Active Substance: VORETIGENE NEPARVOVEC-RZYL
     Dosage: TO THE SECOND EYE
     Dates: start: 20190709, end: 20190709
  2. LUXTURNA [Suspect]
     Active Substance: VORETIGENE NEPARVOVEC-RZYL
     Indication: PRODUCT USED FOR UNKNOWN INDICATION
     Dosage: TO THE EYE
     Dates: start: 20190702, end: 20190702
  3. LUXTURNA [Suspect]
     Active Substance: VORETIGENE NEPARVOVEC-RZYL
     Dosage: TO THE SECOND EYE
     Dates: start: 20190709, end: 20190709
  4. LUXTURNA [Suspect]
     Active Substance: VORETIGENE NEPARVOVEC-RZYL
     Indication: PRODUCT USED FOR UNKNOWN INDICATION
     Dosage: TO THE FIRST EYE
     Dates: start: 20190702, end: 20190702

REACTIONS (1)
  - Chorioretinal folds [Recovered/Resolved with Sequelae]
